FAERS Safety Report 4530593-5 (Version None)
Quarter: 2004Q4

REPORT INFORMATION
  Report Type: 
  Country: None (occurrence: None)
  Receive Date: 20041216
  Receipt Date: 20041203
  Transmission Date: 20050328
  Serious: Yes (Hospitalization)
  Sender: FDA-Public Use
  Company Number: 044-0981-M000002

PATIENT
  Age: 64 Year
  Sex: Male
  Weight: 91 kg

DRUGS (11)
  1. ATORVASTATIN (ATORVASTATIN) [Suspect]
     Indication: HYPERLIPIDAEMIA
     Dosage: SEE IMAGE
     Route: 048
     Dates: start: 19990805, end: 19991013
  2. ATORVASTATIN (ATORVASTATIN) [Suspect]
     Indication: HYPERLIPIDAEMIA
     Dosage: SEE IMAGE
     Route: 048
     Dates: start: 19991014
  3. WARFARIN (WARFARIN) [Concomitant]
  4. NICORANDIL (NICORANDIL) [Concomitant]
  5. FUROSEMIDE [Concomitant]
  6. RANITIDINE [Concomitant]
  7. GLYCERIL TRINITRATE PATCH (GLYCERIL TRINITRATE) [Concomitant]
  8. CARVEDILOL [Concomitant]
  9. ASPIRIN [Concomitant]
  10. POTASSIUM CHLORIDE [Concomitant]
  11. DILTIAZEM HYDROCHLORIDE [Concomitant]

REACTIONS (11)
  - ABDOMINAL PAIN [None]
  - BRADYCARDIA [None]
  - CHOLECYSTITIS [None]
  - CHOLELITHIASIS [None]
  - DIVERTICULUM [None]
  - FALL [None]
  - GALLBLADDER PERFORATION [None]
  - LOWER RESPIRATORY TRACT INFECTION [None]
  - PNEUMONIA [None]
  - POSTOPERATIVE INFECTION [None]
  - STERNAL INJURY [None]
